FAERS Safety Report 10270965 (Version 3)
Quarter: 2014Q3

REPORT INFORMATION
  Report Type: Spontaneous
  Country: JP (occurrence: JP)
  Receive Date: 20140701
  Receipt Date: 20140724
  Transmission Date: 20150326
  Serious: Yes (Hospitalization)
  Sender: FDA-Public Use
  Company Number: JP-GLAXOSMITHKLINE-B1008650A

PATIENT
  Age: 75 Year
  Sex: Female
  Weight: 32 kg

DRUGS (6)
  1. FEROTYM [Concomitant]
     Active Substance: FERROUS CITRATE\SODIUM
     Indication: IRON DEFICIENCY ANAEMIA
     Dosage: 50MG PER DAY
     Route: 048
     Dates: end: 20140625
  2. TICLOPIDINE HYDROCHLORIDE. [Concomitant]
     Active Substance: TICLOPIDINE HYDROCHLORIDE
     Indication: PERIPHERAL ARTERIAL OCCLUSIVE DISEASE
     Dosage: 100MG PER DAY
     Route: 048
     Dates: end: 20140625
  3. AMLODIPINE [Concomitant]
     Active Substance: AMLODIPINE BESYLATE
     Indication: HYPERTENSION
     Dosage: 2.5MG PER DAY
     Route: 048
     Dates: end: 20140625
  4. VALTREX [Suspect]
     Active Substance: VALACYCLOVIR HYDROCHLORIDE
     Indication: HERPES ZOSTER
     Dosage: 1000MG THREE TIMES PER DAY
     Route: 048
     Dates: start: 20140609, end: 20140613
  5. CILOSTAZOL. [Concomitant]
     Active Substance: CILOSTAZOL
     Indication: PERIPHERAL ARTERIAL OCCLUSIVE DISEASE
     Dosage: 50MG THREE TIMES PER DAY
     Route: 048
  6. MELOXICAM. [Concomitant]
     Active Substance: MELOXICAM
     Dosage: 10MG PER DAY
     Route: 048

REACTIONS (7)
  - Dehydration [Unknown]
  - Azotaemia [Unknown]
  - Renal disorder [Unknown]
  - Hyperkalaemia [Recovering/Resolving]
  - Renal failure acute [Recovering/Resolving]
  - Decreased appetite [Unknown]
  - Crystal nephropathy [Unknown]

NARRATIVE: CASE EVENT DATE: 201406
